FAERS Safety Report 4905073-5 (Version None)
Quarter: 2006Q1

REPORT INFORMATION
  Report Type: 
  Country: None (occurrence: None)
  Receive Date: 20060208
  Receipt Date: 20051110
  Transmission Date: 20060701
  Serious: No
  Sender: FDA-Public Use
  Company Number: US-GLAXOSMITHKLINE-A0581838A

PATIENT
  Age: 64 Year
  Sex: Female

DRUGS (5)
  1. PAROXETINE HCL [Suspect]
     Indication: PANIC DISORDER
     Dosage: 20MG PER DAY
     Route: 048
     Dates: start: 20050501, end: 20050101
  2. ATENOLOL [Concomitant]
  3. ALPRAZOLAM [Concomitant]
  4. FOSAMAX [Concomitant]
  5. LAXATIVE [Concomitant]

REACTIONS (1)
  - PANIC ATTACK [None]
